FAERS Safety Report 21528528 (Version 1)
Quarter: 2022Q4

REPORT INFORMATION
  Report Type: Report from Study
  Country: EG (occurrence: EG)
  Receive Date: 20221031
  Receipt Date: 20221031
  Transmission Date: 20230113
  Serious: Yes (Other)
  Sender: FDA-Public Use
  Company Number: EG-NOVARTISPH-NVSC2022EG241430

PATIENT
  Age: 44 Year
  Sex: Male

DRUGS (5)
  1. ENTRESTO [Suspect]
     Active Substance: SACUBITRIL\VALSARTAN
     Indication: Cardiac failure
     Dosage: 1 DOSAGE FORM, BID (50 MG)
     Route: 048
  2. WARFARIN SODIUM [Concomitant]
     Active Substance: WARFARIN SODIUM
     Indication: Anticoagulant therapy
     Dosage: 1 DOSAGE FORM, QD
     Route: 048
  3. NEBIVOLOL HYDROCHLORIDE [Concomitant]
     Active Substance: NEBIVOLOL HYDROCHLORIDE
     Indication: Hypertension
     Dosage: 1 DOSAGE FORM, BID
     Route: 048
  4. SPECTONE [Concomitant]
     Indication: Pulmonary oedema
     Dosage: 1 DOSAGE FORM, BID
     Route: 048
  5. EXAMIDE [Concomitant]
     Indication: Diuretic therapy
     Dosage: 1 DOSAGE FORM, QD
     Route: 048

REACTIONS (2)
  - Angina pectoris [Not Recovered/Not Resolved]
  - Paraesthesia [Not Recovered/Not Resolved]

NARRATIVE: CASE EVENT DATE: 20221001
